FAERS Safety Report 12991525 (Version 1)
Quarter: 2016Q4

REPORT INFORMATION
  Report Type: Spontaneous
  Country: US (occurrence: US)
  Receive Date: 20161201
  Receipt Date: 20161201
  Transmission Date: 20170207
  Serious: No
  Sender: FDA-Public Use
  Company Number: US-ENDO PHARMACEUTICALS INC.-2016-004515

PATIENT
  Age: 93 Year
  Sex: Female
  Weight: 59.02 kg

DRUGS (5)
  1. ALPRAZOLAM TABLETS 0.25 MG [Suspect]
     Active Substance: ALPRAZOLAM
     Indication: DEPRESSION
  2. MECLIZINE [Suspect]
     Active Substance: MECLIZINE HYDROCHLORIDE
     Indication: VERTIGO
     Route: 048
     Dates: start: 2006
  3. ALPRAZOLAM TABLETS 0.25 MG [Suspect]
     Active Substance: ALPRAZOLAM
     Indication: PANIC ATTACK
  4. MECLIZINE [Suspect]
     Active Substance: MECLIZINE HYDROCHLORIDE
     Indication: DIZZINESS
  5. ALPRAZOLAM TABLETS 0.25 MG [Suspect]
     Active Substance: ALPRAZOLAM
     Indication: ANXIETY
     Route: 048

REACTIONS (6)
  - Abdominal discomfort [Not Recovered/Not Resolved]
  - Somnolence [Not Recovered/Not Resolved]
  - Unevaluable event [Not Recovered/Not Resolved]
  - Malaise [Not Recovered/Not Resolved]
  - Off label use [Unknown]
  - Disorientation [Not Recovered/Not Resolved]

NARRATIVE: CASE EVENT DATE: 20160707
